FAERS Safety Report 15924630 (Version 1)
Quarter: 2019Q1

REPORT INFORMATION
  Report Type: Spontaneous
  Country: CA (occurrence: CA)
  Receive Date: 20190206
  Receipt Date: 20190206
  Transmission Date: 20190417
  Serious: Yes (Other)
  Sender: FDA-Public Use
  Company Number: CA-ROCHE-2257778

PATIENT
  Sex: Male

DRUGS (7)
  1. PREDNISONE. [Concomitant]
     Active Substance: PREDNISONE
  2. CELLCEPT [Suspect]
     Active Substance: MYCOPHENOLATE MOFETIL\MYCOPHENOLATE MOFETIL HYDROCHLORIDE
     Indication: BILIARY TRACT DISORDER
  3. CELLCEPT [Suspect]
     Active Substance: MYCOPHENOLATE MOFETIL\MYCOPHENOLATE MOFETIL HYDROCHLORIDE
     Indication: SINUSITIS
     Route: 065
     Dates: start: 201701, end: 201807
  4. CELLCEPT [Suspect]
     Active Substance: MYCOPHENOLATE MOFETIL\MYCOPHENOLATE MOFETIL HYDROCHLORIDE
     Indication: PROSTATITIS
     Route: 065
     Dates: start: 201701
  5. ATORVASTATIN [Concomitant]
     Active Substance: ATORVASTATIN
  6. PERINDOPRIL [Concomitant]
     Active Substance: PERINDOPRIL
  7. CELLCEPT [Suspect]
     Active Substance: MYCOPHENOLATE MOFETIL\MYCOPHENOLATE MOFETIL HYDROCHLORIDE
     Indication: GLOMERULONEPHRITIS MEMBRANOUS

REACTIONS (7)
  - Fatigue [Not Recovered/Not Resolved]
  - Dysuria [Not Recovered/Not Resolved]
  - Joint stiffness [Not Recovered/Not Resolved]
  - Inflammatory marker increased [Not Recovered/Not Resolved]
  - Dyspnoea [Not Recovered/Not Resolved]
  - Blood immunoglobulin G increased [Not Recovered/Not Resolved]
  - Cough [Not Recovered/Not Resolved]
